FAERS Safety Report 8833786 (Version 1)
Quarter: 2012Q4

REPORT INFORMATION
  Report Type: Spontaneous
  Country: US (occurrence: None)
  Receive Date: 20121010
  Receipt Date: 20121010
  Transmission Date: 20130627
  Serious: Yes (Other)
  Sender: FDA-Public Use
  Company Number: None

PATIENT
  Age: 37 Year
  Sex: Female
  Weight: 81.65 kg

DRUGS (1)
  1. ALLERGY MEDICATION [Suspect]

REACTIONS (6)
  - Immediate post-injection reaction [None]
  - Throat tightness [None]
  - Vomiting [None]
  - Cough [None]
  - Eye swelling [None]
  - Pruritus [None]
